FAERS Safety Report 5345802-2 (Version None)
Quarter: 2007Q2

REPORT INFORMATION
  Report Type: 
  Country: None (occurrence: None)
  Receive Date: 20070601
  Receipt Date: 20070521
  Transmission Date: 20071010
  Serious: Yes (Death, Other)
  Sender: FDA-Public Use
  Company Number: 2007US000800

PATIENT
  Age: 14 Year
  Sex: Female

DRUGS (4)
  1. AMBISOME [Suspect]
     Indication: PNEUMONIA FUNGAL
     Dosage: SEE IMAGE
     Route: 041
     Dates: start: 20070226, end: 20070301
  2. AMBISOME [Suspect]
     Indication: PNEUMONIA FUNGAL
     Dosage: SEE IMAGE
     Route: 041
     Dates: start: 20070301, end: 20070315
  3. PROGRAF [Concomitant]
  4. VANCOMYCIN HYDROCHLORIDE [Concomitant]

REACTIONS (4)
  - BONE MARROW TRANSPLANT [None]
  - HYPOKALAEMIA [None]
  - INFLAMMATION [None]
  - PULMONARY HAEMORRHAGE [None]
